FAERS Safety Report 10904025 (Version 1)
Quarter: 2015Q1

REPORT INFORMATION
  Report Type: Spontaneous
  Country: US (occurrence: US)
  Receive Date: 20150311
  Receipt Date: 20150311
  Transmission Date: 20150721
  Serious: Yes (Death, Other)
  Sender: FDA-Public Use
  Company Number: US-ASTRAZENECA-2013SE41254

PATIENT
  Age: 635 Month
  Sex: Male

DRUGS (10)
  1. AMOXICILLIN. [Concomitant]
     Active Substance: AMOXICILLIN
     Route: 048
  2. LANOXIN [Concomitant]
     Active Substance: DIGOXIN
     Dates: start: 19991020
  3. METOPROLOL [Concomitant]
     Active Substance: METOPROLOL
     Route: 048
  4. TOPROL XL [Concomitant]
     Active Substance: METOPROLOL SUCCINATE
  5. NIRAVAM [Concomitant]
     Active Substance: ALPRAZOLAM
     Indication: SINUS DISORDER
     Route: 048
  6. LIPITOR [Concomitant]
     Active Substance: ATORVASTATIN CALCIUM
     Dates: start: 19991020
  7. BYETTA [Suspect]
     Active Substance: EXENATIDE
     Indication: TYPE 2 DIABETES MELLITUS
     Route: 065
     Dates: start: 20070523, end: 200904
  8. LANTUS [Concomitant]
     Active Substance: INSULIN GLARGINE
  9. VALIUM [Concomitant]
     Active Substance: DIAZEPAM
     Indication: SINUS DISORDER
     Route: 048
  10. ENDOCET [Concomitant]
     Active Substance: ACETAMINOPHEN\OXYCODONE HYDROCHLORIDE
     Indication: SINUS DISORDER
     Route: 048

REACTIONS (1)
  - Pancreatic carcinoma metastatic [Fatal]

NARRATIVE: CASE EVENT DATE: 201106
